FAERS Safety Report 9670681 (Version 2)
Quarter: 2014Q1

REPORT INFORMATION
  Report Type: Spontaneous
  Country: AR (occurrence: AR)
  Receive Date: 20131106
  Receipt Date: 20140210
  Transmission Date: 20141002
  Serious: Yes (Other)
  Sender: FDA-Public Use
  Company Number: AR-AMGEN-ARGSP2013078081

PATIENT
  Age: 58 Year
  Sex: Female

DRUGS (5)
  1. ENBREL [Suspect]
     Indication: RHEUMATOID ARTHRITIS
     Dosage: 50 MG, WEEKLY
     Route: 065
     Dates: start: 20090916
  2. TAFIROL                            /00321701/ [Concomitant]
     Indication: PAIN
     Dosage: 2 PILLS PER DAY AS NEEDED
  3. OMEPRAZOL                          /00661201/ [Concomitant]
     Indication: PROPHYLAXIS
     Dosage: UNK
  4. LANICOR [Concomitant]
     Dosage: UNK
  5. ATLANSIL                           /00133101/ [Concomitant]
     Dosage: UNK

REACTIONS (1)
  - Osteoarthritis [Recovering/Resolving]
